FAERS Safety Report 5730200-X (Version None)
Quarter: 2008Q2

REPORT INFORMATION
  Report Type: 
  Country: None (occurrence: None)
  Receive Date: 20080502
  Receipt Date: 20080418
  Transmission Date: 20081010
  Serious: Yes (Death, Hospitalization)
  Sender: FDA-Public Use
  Company Number: 2008S1000306

PATIENT
  Age: 43 Year
  Sex: Female

DRUGS (3)
  1. ORAMORPH SR [Suspect]
     Indication: PAIN
  2. LAPATINIB        (LAPATINIB) [Suspect]
     Indication: BREAST CANCER METASTATIC
     Dosage: 1250 MG;QD;PO
     Route: 048
     Dates: start: 20080318, end: 20080320
  3. CAPECITABINE      (CAPECITABINE) [Suspect]
     Indication: BREAST CANCER METASTATIC
     Dosage: 3600 MG; QD; PO
     Route: 048
     Dates: start: 20080318, end: 20080320

REACTIONS (11)
  - ASPARTATE AMINOTRANSFERASE INCREASED [None]
  - BLOOD ALKALINE PHOSPHATASE INCREASED [None]
  - C-REACTIVE PROTEIN INCREASED [None]
  - DEHYDRATION [None]
  - DYSPNOEA [None]
  - HYPONATRAEMIA [None]
  - HYPOTENSION [None]
  - NAUSEA [None]
  - ORAL INTAKE REDUCED [None]
  - TACHYCARDIA [None]
  - VOMITING [None]
